FAERS Safety Report 11491779 (Version 1)
Quarter: 2015Q3

REPORT INFORMATION
  Report Type: Spontaneous
  Country: US (occurrence: US)
  Receive Date: 20150910
  Receipt Date: 20150910
  Transmission Date: 20151125
  Serious: No
  Sender: FDA-Public Use
  Company Number: US-GLAXOSMITHKLINE-US2015GSK116400

PATIENT
  Sex: Male

DRUGS (1)
  1. ADVAIR DISKUS [Suspect]
     Active Substance: FLUTICASONE PROPIONATE\SALMETEROL XINAFOATE
     Indication: EMPHYSEMA
     Dosage: 250 UG, UNK
     Route: 055
     Dates: start: 1999

REACTIONS (4)
  - Confusional state [Unknown]
  - Illiteracy [Unknown]
  - Hypoacusis [Unknown]
  - Dyspnoea [Unknown]
